FAERS Safety Report 25053595 (Version 1)
Quarter: 2025Q1

REPORT INFORMATION
  Report Type: Spontaneous
  Country: US (occurrence: US)
  Receive Date: 20250307
  Receipt Date: 20250307
  Transmission Date: 20250409
  Serious: No
  Sender: SANOFI AVENTIS
  Company Number: US-SA-2025SA065554

PATIENT
  Sex: Female

DRUGS (5)
  1. DUPIXENT [Suspect]
     Active Substance: DUPILUMAB
     Indication: Dermatitis atopic
     Dosage: 300MG EVERY TWO WEEKS
     Route: 058
  2. FLUZONE HIGH-DOSE NOS [Concomitant]
     Active Substance: INFLUENZA A VIRUS A/CALIFORNIA/7/2009 X-179A (H1N1) ANTIGEN (FORMALDEHYDE INACTIVATED)\INFLUENZA A V
  3. SPIKEVAX [Concomitant]
     Active Substance: CX-046684
  4. TACROLIMUS [Concomitant]
     Active Substance: TACROLIMUS
  5. Triamcinolon [Concomitant]

REACTIONS (3)
  - Accidental exposure to product [Unknown]
  - Exposure via skin contact [Unknown]
  - Injection site pain [Not Recovered/Not Resolved]
